FAERS Safety Report 7285326-9 (Version None)
Quarter: 2011Q1

REPORT INFORMATION
  Report Type: 
  Country: None (occurrence: None)
  Receive Date: 20110210
  Receipt Date: 20110128
  Transmission Date: 20110831
  Serious: Yes (Other)
  Sender: FDA-Public Use
  Company Number: TR-ROCHE-756624

PATIENT
  Sex: Male
  Weight: 1.1 kg

DRUGS (1)
  1. TAMIFLU [Suspect]
     Indication: PNEUMONIA INFLUENZAL
     Route: 064

REACTIONS (3)
  - PREMATURE BABY [None]
  - KERATITIS [None]
  - RETINOPATHY OF PREMATURITY [None]
